FAERS Safety Report 25575694 (Version 2)
Quarter: 2025Q3

REPORT INFORMATION
  Report Type: Report from Study
  Country: CA (occurrence: CA)
  Receive Date: 20250718
  Receipt Date: 20250821
  Transmission Date: 20251021
  Serious: Yes (Other)
  Sender: TAKEDA
  Company Number: CA-TAKEDA-2025TUS060484

PATIENT
  Sex: Female

DRUGS (1)
  1. VEDOLIZUMAB [Suspect]
     Active Substance: VEDOLIZUMAB
     Indication: Crohn^s disease

REACTIONS (7)
  - Crohn^s disease [Not Recovered/Not Resolved]
  - Skin abrasion [Not Recovered/Not Resolved]
  - Quality of life decreased [Unknown]
  - Apathy [Unknown]
  - Asthenia [Unknown]
  - Anal fissure [Unknown]
  - Arthralgia [Unknown]
